FAERS Safety Report 22124107 (Version 1)
Quarter: 2023Q1

REPORT INFORMATION
  Report Type: Report from Study
  Country: US (occurrence: US)
  Receive Date: 20230322
  Receipt Date: 20230322
  Transmission Date: 20230417
  Serious: Yes (Other)
  Sender: FDA-Public Use
  Company Number: US-UCBSA-2023014314

PATIENT
  Age: 15 Year
  Sex: Male
  Weight: 53.8 kg

DRUGS (4)
  1. FINTEPLA [Suspect]
     Active Substance: FENFLURAMINE
     Indication: Product used for unknown indication
     Dosage: 3 MILLILITER, 2X/DAY (BID)
     Dates: start: 20220714
  2. FINTEPLA [Suspect]
     Active Substance: FENFLURAMINE
     Dosage: 0.25 MILLIGRAM/KILOGRAM, ONCE DAILY (QD)
  3. FINTEPLA [Suspect]
     Active Substance: FENFLURAMINE
     Dosage: 0.24 MILLIGRAM/KILOGRAM, ONCE DAILY (QD)
  4. FINTEPLA [Suspect]
     Active Substance: FENFLURAMINE
     Dosage: 0.23 MILLIGRAM/KILOGRAM, ONCE DAILY (QD)

REACTIONS (2)
  - Aortic valve incompetence [Not Recovered/Not Resolved]
  - Echocardiogram abnormal [Not Recovered/Not Resolved]

NARRATIVE: CASE EVENT DATE: 20220719
